FAERS Safety Report 25656222 (Version 2)
Quarter: 2025Q3

REPORT INFORMATION
  Report Type: Spontaneous
  Country: JP (occurrence: JP)
  Receive Date: 20250807
  Receipt Date: 20250819
  Transmission Date: 20251021
  Serious: Yes (Hospitalization)
  Sender: EISAI
  Company Number: JP-Eisai-202505490_LEN-EC_P_1

PATIENT
  Age: 74 Year
  Sex: Female

DRUGS (3)
  1. LENVIMA [Suspect]
     Active Substance: LENVATINIB
     Indication: Endometrial cancer
     Dates: start: 20241202, end: 20250507
  2. LENVIMA [Suspect]
     Active Substance: LENVATINIB
     Dates: start: 2025, end: 20250708
  3. KEYTRUDA [Concomitant]
     Active Substance: PEMBROLIZUMAB
     Indication: Endometrial cancer
     Dates: start: 20241202, end: 20250725

REACTIONS (4)
  - Renal failure [Not Recovered/Not Resolved]
  - Hypocalcaemia [Unknown]
  - Altered state of consciousness [Recovered/Resolved]
  - Proteinuria [Recovered/Resolved]

NARRATIVE: CASE EVENT DATE: 20250101
